FAERS Safety Report 13090184 (Version 1)
Quarter: 2017Q1

REPORT INFORMATION
  Report Type: Not Available
  Country: TW (occurrence: TW)
  Receive Date: 20170105
  Receipt Date: 20170105
  Transmission Date: 20170428
  Serious: Yes (Death)
  Sender: FDA-Public Use
  Company Number: TW-ANIPHARMA-2017-TW-000001

PATIENT
  Age: 43 Year
  Sex: Male

DRUGS (1)
  1. LITHIUM CARBONATE (NON-SPECIFIC) [Suspect]
     Active Substance: LITHIUM
     Route: 065

REACTIONS (8)
  - Toxicity to various agents [Fatal]
  - Metabolic acidosis [Unknown]
  - Brain oedema [Fatal]
  - Dialysis disequilibrium syndrome [Unknown]
  - Brain herniation [Fatal]
  - Generalised tonic-clonic seizure [Fatal]
  - Acute kidney injury [Fatal]
  - Ataxia [Unknown]
